FAERS Safety Report 15601725 (Version 4)
Quarter: 2020Q1

REPORT INFORMATION
  Report Type: Report from Study
  Country: CA (occurrence: CA)
  Receive Date: 20181109
  Receipt Date: 20200121
  Transmission Date: 20200409
  Serious: Yes (Life-Threatening, Other)
  Sender: FDA-Public Use
  Company Number: PHHY2016CA076143

PATIENT
  Age: 47 Year
  Sex: Female

DRUGS (3)
  1. GILENYA [Suspect]
     Active Substance: FINGOLIMOD HYDROCHLORIDE
     Dosage: 2 DF, BID
     Route: 048
     Dates: start: 20181024, end: 20191212
  2. GILENYA [Suspect]
     Active Substance: FINGOLIMOD HYDROCHLORIDE
     Dosage: UNK, QD
     Route: 048
     Dates: start: 20131204
  3. GILENYA [Suspect]
     Active Substance: FINGOLIMOD HYDROCHLORIDE
     Indication: MULTIPLE SCLEROSIS
     Dosage: UNK
     Route: 048
     Dates: start: 201309

REACTIONS (11)
  - Balance disorder [Unknown]
  - Liver injury [Not Recovered/Not Resolved]
  - Fine motor skill dysfunction [Unknown]
  - Nasopharyngitis [Unknown]
  - Lymphangiosis carcinomatosa [Not Recovered/Not Resolved]
  - Extra dose administered [Unknown]
  - Expanded disability status scale [Unknown]
  - Hemiparesis [Unknown]
  - Lung neoplasm [Not Recovered/Not Resolved]
  - Sunburn [Unknown]
  - Lung neoplasm malignant [Unknown]

NARRATIVE: CASE EVENT DATE: 20181024
